FAERS Safety Report 6385617-X (Version None)
Quarter: 2009Q4

REPORT INFORMATION
  Report Type: 
  Country: None (occurrence: None)
  Receive Date: 20091002
  Receipt Date: 20081010
  Transmission Date: 20100525
  Serious: No
  Sender: FDA-Public Use
  Company Number: US-ASTRAZENECA-2008UW22194

PATIENT
  Age: 84 Year
  Sex: Female

DRUGS (2)
  1. ARIMIDEX [Suspect]
     Indication: BREAST CANCER
     Route: 048
     Dates: start: 20040901
  2. ARIMIDEX [Suspect]
     Route: 048
     Dates: start: 20060101

REACTIONS (5)
  - DIABETES MELLITUS [None]
  - FEELING JITTERY [None]
  - FLUSHING [None]
  - HYPERHIDROSIS [None]
  - MOOD ALTERED [None]
